FAERS Safety Report 7235268-X (Version None)
Quarter: 2011Q1

REPORT INFORMATION
  Report Type: 
  Country: None (occurrence: None)
  Receive Date: 20110114
  Receipt Date: 20110114
  Transmission Date: 20110831
  Serious: No
  Sender: FDA-Public Use
  Company Number: None

PATIENT
  Sex: Male
  Weight: 102.3 kg

DRUGS (1)
  1. DAUNORUBICIN HCL [Suspect]
     Dosage: 171 MG

REACTIONS (5)
  - CHEST DISCOMFORT [None]
  - ATRIAL FIBRILLATION [None]
  - ANXIETY [None]
  - PALPITATIONS [None]
  - BLOOD PRESSURE DECREASED [None]
